FAERS Safety Report 23849260 (Version 1)
Quarter: 2024Q2

REPORT INFORMATION
  Report Type: Spontaneous
  Country: JP (occurrence: JP)
  Receive Date: 20240513
  Receipt Date: 20240513
  Transmission Date: 20240716
  Serious: Yes (Other)
  Sender: FDA-Public Use
  Company Number: JP-SA-2024SA139687

PATIENT
  Age: 60 Year
  Sex: Male

DRUGS (20)
  1. FLUDARABINE PHOSPHATE [Suspect]
     Active Substance: FLUDARABINE PHOSPHATE
     Indication: Bone marrow conditioning regimen
     Dosage: 180 MG/M2
  2. FLUDARABINE PHOSPHATE [Suspect]
     Active Substance: FLUDARABINE PHOSPHATE
     Indication: Precursor B-lymphoblastic lymphoma
  3. ANTI-THYMOCYTE GLOBULIN (RABBIT) NOS [Suspect]
     Active Substance: LAPINE T-LYMPHOCYTE IMMUNE GLOBULIN
     Indication: Bone marrow conditioning regimen
     Dosage: 2 MG/KG
  4. ANTI-THYMOCYTE GLOBULIN (RABBIT) NOS [Suspect]
     Active Substance: LAPINE T-LYMPHOCYTE IMMUNE GLOBULIN
     Indication: Precursor B-lymphoblastic lymphoma
  5. DEXAMETHASONE [Suspect]
     Active Substance: DEXAMETHASONE
     Indication: Precursor B-lymphoblastic lymphoma
     Dosage: THREE CYCLES
  6. PREDNISONE [Suspect]
     Active Substance: PREDNISONE
     Indication: Graft versus host disease in skin
     Dosage: 60 MG PREDNISONE (1.0 MG/KG) PER DAY
  7. PREDNISONE [Suspect]
     Active Substance: PREDNISONE
     Dosage: TAPERED TO 12 MG/DAY
  8. PREDNISONE [Suspect]
     Active Substance: PREDNISONE
     Dosage: 30 MG (0.5 MG/KG) PER DAY
  9. PREDNISONE [Suspect]
     Active Substance: PREDNISONE
     Dosage: 120 MG (2.0MG/KG) PER DAY
  10. PREDNISONE [Suspect]
     Active Substance: PREDNISONE
     Dosage: 35MG/DAY
  11. METHOTREXATE [Suspect]
     Active Substance: METHOTREXATE
     Indication: Prophylaxis against graft versus host disease
     Dosage: UNK, THREE CYCLES, HIGH DOSE
  12. MELPHALAN [Suspect]
     Active Substance: MELPHALAN
     Indication: Bone marrow conditioning regimen
     Dosage: 140 MG/M2
  13. MELPHALAN [Suspect]
     Active Substance: MELPHALAN
     Indication: Precursor B-lymphoblastic lymphoma
  14. CYCLOPHOSPHAMIDE [Suspect]
     Active Substance: CYCLOPHOSPHAMIDE
     Indication: Precursor B-lymphoblastic lymphoma
     Dosage: THREE CYCLES
  15. VINCRISTINE [Suspect]
     Active Substance: VINCRISTINE
     Indication: Precursor B-lymphoblastic lymphoma
     Dosage: THREE CYCLES
  16. DOXORUBICIN [Suspect]
     Active Substance: DOXORUBICIN
     Indication: Precursor B-lymphoblastic lymphoma
     Dosage: THREE CYCLES
  17. CYTARABINE [Suspect]
     Active Substance: CYTARABINE
     Indication: Precursor B-lymphoblastic lymphoma
     Dosage: THREE CYCLES
  18. TACROLIMUS [Suspect]
     Active Substance: TACROLIMUS
     Indication: Prophylaxis against graft versus host disease
     Dosage: UNK
  19. MYCOPHENOLATE MOFETIL [Suspect]
     Active Substance: MYCOPHENOLATE MOFETIL
     Indication: Organising pneumonia
     Dosage: 200 MG, QD
  20. MYCOPHENOLATE MOFETIL [Suspect]
     Active Substance: MYCOPHENOLATE MOFETIL
     Indication: Chronic graft versus host disease
     Dosage: UNK, MAINTENANCE DOSE

REACTIONS (10)
  - Organising pneumonia [Recovering/Resolving]
  - Lung infiltration [Recovering/Resolving]
  - Pyrexia [Recovering/Resolving]
  - Fatigue [Recovering/Resolving]
  - Rales [Recovering/Resolving]
  - Leukocytosis [Recovering/Resolving]
  - Hypogammaglobulinaemia [Recovering/Resolving]
  - Nocardiosis [Recovered/Resolved]
  - Brain abscess [Recovered/Resolved]
  - Off label use [Unknown]
